FAERS Safety Report 21698877 (Version 1)
Quarter: 2022Q4

REPORT INFORMATION
  Report Type: Spontaneous
  Country: CA (occurrence: CA)
  Receive Date: 20221208
  Receipt Date: 20221208
  Transmission Date: 20230112
  Serious: Yes (Other)
  Sender: FDA-Public Use
  Company Number: CA-ORGANON-O2212CAN000499

PATIENT
  Sex: Female

DRUGS (4)
  1. MAXALT [Interacting]
     Active Substance: RIZATRIPTAN BENZOATE
     Dosage: UNK
     Route: 065
  2. FLEXERIL [Interacting]
     Active Substance: CYCLOBENZAPRINE HYDROCHLORIDE
     Indication: Muscle spasms
     Dosage: UNK
     Route: 065
  3. FLEXERIL [Interacting]
     Active Substance: CYCLOBENZAPRINE HYDROCHLORIDE
     Indication: Migraine
  4. SERTRALINE [Interacting]
     Active Substance: SERTRALINE HYDROCHLORIDE
     Dosage: UNK
     Route: 065

REACTIONS (3)
  - Drug interaction [Unknown]
  - Serotonin syndrome [Unknown]
  - Supraventricular tachycardia [Unknown]
